FAERS Safety Report 24143830 (Version 1)
Quarter: 2024Q3

REPORT INFORMATION
  Report Type: Spontaneous
  Country: US (occurrence: US)
  Receive Date: 20240727
  Receipt Date: 20240727
  Transmission Date: 20241017
  Serious: Yes (Other)
  Sender: DR REDDYS
  Company Number: US-DRL-USA-LIT/USA/24/0010796

PATIENT
  Age: 70 Year
  Sex: Male

DRUGS (6)
  1. TACROLIMUS [Suspect]
     Active Substance: TACROLIMUS
     Indication: Idiopathic orbital inflammation
  2. TACROLIMUS [Suspect]
     Active Substance: TACROLIMUS
     Indication: Immunomodulatory therapy
  3. MYCOPHENOLATE MOFETIL [Concomitant]
     Active Substance: MYCOPHENOLATE MOFETIL
     Indication: Idiopathic orbital inflammation
  4. MYCOPHENOLATE MOFETIL [Concomitant]
     Active Substance: MYCOPHENOLATE MOFETIL
     Indication: Immunomodulatory therapy
  5. INFLIXIMAB [Concomitant]
     Active Substance: INFLIXIMAB
     Indication: Idiopathic orbital inflammation
  6. INFLIXIMAB [Concomitant]
     Active Substance: INFLIXIMAB
     Indication: Immunomodulatory therapy

REACTIONS (1)
  - Drug ineffective for unapproved indication [Unknown]
